FAERS Safety Report 7208578-X (Version None)
Quarter: 2011Q1

REPORT INFORMATION
  Report Type: 
  Country: None (occurrence: None)
  Receive Date: 20110104
  Receipt Date: 20101224
  Transmission Date: 20110831
  Serious: Yes (Hospitalization)
  Sender: FDA-Public Use
  Company Number: JP-JNJFOC-20101208854

PATIENT
  Age: 42 Year
  Sex: Male
  Weight: 64 kg

DRUGS (4)
  1. REMICADE [Suspect]
     Indication: CROHN'S DISEASE
     Dosage: 17TH INFUSION
     Route: 042
  2. GASTER [Concomitant]
     Route: 048
  3. REMICADE [Suspect]
     Route: 042
  4. PENTASA [Concomitant]
     Route: 048

REACTIONS (1)
  - TUBERCULOUS PLEURISY [None]
